FAERS Safety Report 23585928 (Version 1)
Quarter: 2024Q1

REPORT INFORMATION
  Report Type: Other
  Country: VN (occurrence: None)
  Receive Date: 20240301
  Receipt Date: 20240301
  Transmission Date: 20240410
  Serious: Yes (Other)
  Sender: FDA-Public Use
  Company Number: VN-ROCHE-3516836

PATIENT

DRUGS (3)
  1. XELODA [Suspect]
     Active Substance: CAPECITABINE
     Indication: Colorectal adenocarcinoma
     Dosage: 1000 MG/M2 ORALLY 2 TIMES A DAY ON DAYS 1-14. 3-WEEK CYCLE
     Route: 048
  2. BEVACIZUMAB [Suspect]
     Active Substance: BEVACIZUMAB
     Indication: Colorectal adenocarcinoma
     Dosage: 5-10 MG/KG, INTRAVENOUS INFUSION FOR 60 MINUTES, DAY 1
     Route: 042
  3. OXALIPLATIN [Suspect]
     Active Substance: OXALIPLATIN
     Indication: Colorectal adenocarcinoma
     Dosage: 130 MG/M2 SKIN, INTRAVENOUS INFUSION FOR 120 MINUTES, DAY 1
     Route: 042

REACTIONS (16)
  - Anaemia [Unknown]
  - Thrombocytopenia [Unknown]
  - Pancytopenia [Unknown]
  - Gastrointestinal perforation [Unknown]
  - Granulocytopenia [Unknown]
  - White blood cell count decreased [Unknown]
  - Hepatotoxicity [Unknown]
  - Vomiting [Unknown]
  - Leukopenia [Unknown]
  - Nausea [Unknown]
  - Diarrhoea [Unknown]
  - Hypertension [Unknown]
  - Palmar-plantar erythrodysaesthesia syndrome [Unknown]
  - Haemorrhage [Unknown]
  - Neuropathy peripheral [Unknown]
  - Blood creatinine increased [Unknown]
